FAERS Safety Report 21294669 (Version 1)
Quarter: 2022Q3

REPORT INFORMATION
  Report Type: Spontaneous
  Country: US (occurrence: US)
  Receive Date: 20220905
  Receipt Date: 20220905
  Transmission Date: 20221027
  Serious: Yes (Other)
  Sender: FDA-Public Use
  Company Number: US-AMGEN-USASP2022150475

PATIENT
  Age: 73 Year
  Sex: Male

DRUGS (2)
  1. PROLIA [Suspect]
     Active Substance: DENOSUMAB
     Indication: Product used for unknown indication
     Dosage: UNK
     Route: 065
  2. CABOMETYX [Suspect]
     Active Substance: CABOZANTINIB S-MALATE
     Indication: Product used for unknown indication
     Dosage: 60 MILLIGRAM, QD
     Route: 048
     Dates: start: 202103

REACTIONS (17)
  - Weight decreased [Unknown]
  - Gingival recession [Unknown]
  - Visual impairment [Unknown]
  - Toothache [Unknown]
  - Corneal abrasion [Unknown]
  - Blood thyroid stimulating hormone decreased [Unknown]
  - Blood pressure decreased [Unknown]
  - Palmar-plantar erythrodysaesthesia syndrome [Unknown]
  - Dysphonia [Unknown]
  - Fatigue [Unknown]
  - Diarrhoea [Not Recovered/Not Resolved]
  - Nausea [Unknown]
  - Stomatitis [Not Recovered/Not Resolved]
  - Blood pressure increased [Unknown]
  - Taste disorder [Unknown]
  - Decreased appetite [Unknown]
  - Dry eye [Unknown]

NARRATIVE: CASE EVENT DATE: 20210331
